FAERS Safety Report 10370692 (Version 4)
Quarter: 2014Q3

REPORT INFORMATION
  Report Type: Spontaneous
  Country: SI (occurrence: SI)
  Receive Date: 20140808
  Receipt Date: 20140828
  Transmission Date: 20150326
  Serious: Yes (Other)
  Sender: FDA-Public Use
  Company Number: SI-PFIZER INC-2014221305

PATIENT
  Age: 57 Year
  Sex: Female

DRUGS (4)
  1. EFECTIN ER [Suspect]
     Active Substance: VENLAFAXINE HYDROCHLORIDE
     Dosage: GRADUALLY INCREASED
  2. EFECTIN ER [Suspect]
     Active Substance: VENLAFAXINE HYDROCHLORIDE
     Dosage: 150 MG, 1X/DAY
     Dates: start: 2003
  3. KVENTIAX [Concomitant]
     Dosage: 25 MG, AS NEEDED AT EVENING
  4. EFECTIN ER [Suspect]
     Active Substance: VENLAFAXINE HYDROCHLORIDE
     Dosage: 150 MG, 2X/DAY
     Dates: start: 2009

REACTIONS (4)
  - Confusional state [Unknown]
  - Loss of consciousness [Recovered/Resolved]
  - Convulsion [Unknown]
  - Fall [Unknown]

NARRATIVE: CASE EVENT DATE: 201408
